FAERS Safety Report 21280012 (Version 2)
Quarter: 2022Q3

REPORT INFORMATION
  Report Type: Report from Study
  Country: MX (occurrence: None)
  Receive Date: 20220901
  Receipt Date: 20220916
  Transmission Date: 20221026
  Serious: Yes (Other)
  Sender: FDA-Public Use
  Company Number: MX-Orion Corporation ORION PHARMA-ENTC2022-0173

PATIENT
  Age: 60 Year
  Sex: Male
  Weight: 98 kg

DRUGS (3)
  1. STALEVO [Suspect]
     Active Substance: CARBIDOPA\ENTACAPONE\LEVODOPA
     Indication: Parkinson^s disease
     Dosage: STRENGTH: 100 MG
     Route: 048
  2. STALEVO [Suspect]
     Active Substance: CARBIDOPA\ENTACAPONE\LEVODOPA
     Route: 048
  3. STALEVO [Suspect]
     Active Substance: CARBIDOPA\ENTACAPONE\LEVODOPA
     Dosage: LEVODOPA 200MG-CARBIDOPA 200MG-ENTACAPONE 50MG; 5 QD
     Route: 048

REACTIONS (3)
  - General physical health deterioration [Unknown]
  - Speech disorder [Unknown]
  - Tongue disorder [Unknown]
